FAERS Safety Report 9530050 (Version 1)
Quarter: 2013Q3

REPORT INFORMATION
  Report Type: Spontaneous
  Country: US (occurrence: US)
  Receive Date: 20130917
  Receipt Date: 20130917
  Transmission Date: 20140515
  Serious: No
  Sender: FDA-Public Use
  Company Number: US-BAYER-2013-112296

PATIENT
  Age: 35 Year
  Sex: Female
  Weight: 86 kg

DRUGS (2)
  1. ALEVE TABLET [Suspect]
     Indication: TOOTHACHE
     Dosage: 2 DF, PRN
     Route: 048
     Dates: start: 2011
  2. ALEVE TABLET [Suspect]
     Indication: TOOTHACHE
     Dosage: 4 DF IN LESS THAN 6 HOURS
     Route: 048
     Dates: start: 20130916

REACTIONS (2)
  - Extra dose administered [None]
  - Drug ineffective [None]
